FAERS Safety Report 19594973 (Version 2)
Quarter: 2021Q3

REPORT INFORMATION
  Report Type: Spontaneous
  Country: US (occurrence: US)
  Receive Date: 20210722
  Receipt Date: 20210728
  Transmission Date: 20211014
  Serious: Yes (Hospitalization)
  Sender: FDA-Public Use
  Company Number: US-TEVA-2021-US-1933627

PATIENT
  Age: 46 Year
  Sex: Female

DRUGS (1)
  1. EVEROLIMUS. [Suspect]
     Active Substance: EVEROLIMUS
     Indication: TUBEROUS SCLEROSIS COMPLEX
     Dosage: RECEIVING FOR 10 YEARS
     Route: 065

REACTIONS (2)
  - Hypoxia [Recovered/Resolved]
  - Organising pneumonia [Recovered/Resolved]
